FAERS Safety Report 10631914 (Version 1)
Quarter: 2014Q4

REPORT INFORMATION
  Report Type: Report from Study
  Country: ES (occurrence: ES)
  Receive Date: 20141205
  Receipt Date: 20141205
  Transmission Date: 20150529
  Serious: Yes (Death, Other)
  Sender: FDA-Public Use
  Company Number: ES-ROCHE-1501646

PATIENT

DRUGS (3)
  1. PEGINTERFERON ALFA-2A [Suspect]
     Active Substance: PEGINTERFERON ALFA-2A
     Indication: IMMUNOMODULATORY THERAPY
     Route: 058
  2. INTERLEUKIN 2 [Suspect]
     Active Substance: ALDESLEUKIN
     Indication: IMMUNOMODULATORY THERAPY
     Dosage: 1.8 MU PER DAY, 5 DAYS PER WEEK, 3 WEEKS PER MONTH
     Route: 058
  3. ISOTRETINOIN [Suspect]
     Active Substance: ISOTRETINOIN
     Indication: IMMUNOMODULATORY THERAPY
     Route: 048

REACTIONS (5)
  - Hypersensitivity [Unknown]
  - Vascular dementia [Unknown]
  - Polyserositis [Fatal]
  - Hepatotoxicity [Unknown]
  - Angina pectoris [Recovered/Resolved]
